FAERS Safety Report 9759718 (Version 1)
Quarter: 2013Q4

REPORT INFORMATION
  Report Type: Spontaneous
  Country: US (occurrence: US)
  Receive Date: 20131216
  Receipt Date: 20131216
  Transmission Date: 20140711
  Serious: No
  Sender: FDA-Public Use
  Company Number: US-GILEAD-2010-0029066

PATIENT
  Sex: Female
  Weight: 56 kg

DRUGS (11)
  1. LETAIRIS [Suspect]
     Indication: PULMONARY ARTERIAL HYPERTENSION
     Route: 048
     Dates: start: 20100413
  2. ASA [Concomitant]
  3. PRILOSEC [Concomitant]
  4. XOPENEX HFA [Concomitant]
  5. BYSTOLIC [Concomitant]
  6. ADVAIR DISKUS [Concomitant]
  7. NIFEDICAL [Concomitant]
  8. PREDNISONE [Concomitant]
  9. LASIX [Concomitant]
  10. ZOCOR [Concomitant]
  11. FOSAMAX [Concomitant]

REACTIONS (1)
  - Local swelling [Unknown]
